FAERS Safety Report 4902087-6 (Version None)
Quarter: 2006Q1

REPORT INFORMATION
  Report Type: 
  Country: None (occurrence: None)
  Receive Date: 20060206
  Receipt Date: 20060201
  Transmission Date: 20060701
  Serious: Yes (Other)
  Sender: FDA-Public Use
  Company Number: 6020069

PATIENT
  Sex: Male

DRUGS (3)
  1. AVANDIA [Suspect]
     Indication: DIABETES MELLITUS NON-INSULIN-DEPENDENT
  2. METFORMIN [Suspect]
     Indication: DRUG USE FOR UNKNOWN INDICATION
  3. GLYCOSIDE [Concomitant]

REACTIONS (3)
  - EYE PAIN [None]
  - GLAUCOMA [None]
  - INTRAOCULAR PRESSURE TEST [None]
